FAERS Safety Report 8216958-9 (Version None)
Quarter: 2012Q1

REPORT INFORMATION
  Report Type: 
  Country: None (occurrence: None)
  Receive Date: 20120319
  Receipt Date: 20120306
  Transmission Date: 20120608
  Serious: Yes (Hospitalization, Other)
  Sender: FDA-Public Use
  Company Number: DE-BRISTOL-MYERS SQUIBB COMPANY-16443384

PATIENT
  Age: 79 Year
  Sex: Female

DRUGS (5)
  1. METFORMIN HCL [Suspect]
     Route: 048
     Dates: end: 20111223
  2. HALDOL [Suspect]
     Route: 048
     Dates: start: 20111221, end: 20111223
  3. PANTOPRAZOLE [Concomitant]
     Route: 048
     Dates: end: 20120125
  4. METHOTREXATE [Suspect]
     Dates: end: 20111219
  5. RAMIPRIL [Concomitant]
     Route: 048
     Dates: end: 20111230

REACTIONS (2)
  - HEPATIC ENZYME INCREASED [None]
  - JAUNDICE [None]
